FAERS Safety Report 9180151 (Version 1)
Quarter: 2013Q1

REPORT INFORMATION
  Report Type: Spontaneous
  Country: US (occurrence: US)
  Receive Date: 20130321
  Receipt Date: 20130321
  Transmission Date: 20140127
  Serious: No
  Sender: FDA-Public Use
  Company Number: US-009507513-1303USA008509

PATIENT
  Sex: 0
  Weight: 112.2 kg

DRUGS (1)
  1. NEXPLANON [Suspect]
     Dosage: 1 DF, UNK
     Route: 059
     Dates: start: 20130314

REACTIONS (3)
  - Device expulsion [Unknown]
  - Device difficult to use [Unknown]
  - No adverse event [Unknown]
